FAERS Safety Report 22389397 (Version 1)
Quarter: 2023Q2

REPORT INFORMATION
  Report Type: Spontaneous
  Country: US (occurrence: None)
  Receive Date: 20230531
  Receipt Date: 20230531
  Transmission Date: 20230722
  Serious: No
  Sender: FDA-Public Use
  Company Number: 2023A122473

PATIENT
  Sex: Female

DRUGS (1)
  1. SYMBICORT [Suspect]
     Active Substance: BUDESONIDE\FORMOTEROL FUMARATE DIHYDRATE
     Dosage: 160 UG, FREQUENCY UNKNOWN UNKNOWN
     Route: 055

REACTIONS (3)
  - Bronchial disorder [Unknown]
  - Hypoacusis [Unknown]
  - Product dose omission issue [Unknown]
